FAERS Safety Report 8881121 (Version 4)
Quarter: 2013Q1

REPORT INFORMATION
  Report Type: Report from Study
  Country: JP (occurrence: JP)
  Receive Date: 20121101
  Receipt Date: 20130128
  Transmission Date: 20140127
  Serious: Yes (Hospitalization)
  Sender: FDA-Public Use
  Company Number: JP-PFIZER INC-2012242038

PATIENT
  Age: 71 Year
  Sex: Female
  Weight: 48 kg

DRUGS (11)
  1. XALKORI [Suspect]
     Indication: NON-SMALL CELL LUNG CANCER
     Dosage: 200 MG, 2X/DAY
     Route: 048
     Dates: start: 20120719, end: 20120723
  2. XALKORI [Suspect]
     Dosage: 250 MG, 2X/DAY
     Route: 048
     Dates: start: 20120724, end: 20120901
  3. AMLODIPINE OD [Concomitant]
     Dosage: 5 MG, 1X/DAY
     Route: 048
  4. BIO-THREE [Concomitant]
     Dosage: 1 TABLET, 3X/DAY
     Route: 048
  5. ALBUMIN TANNATE [Concomitant]
     Dosage: 1 G, 2X/DAY
     Route: 048
  6. VITAMEDIN CAPSULE [Concomitant]
     Dosage: 1 CAPSULE, 3X/DAY
     Route: 048
  7. FAMOTIDINE D [Concomitant]
     Dosage: 10 MG, 2X/DAY
     Route: 048
  8. XYZAL [Concomitant]
     Dosage: 5 MG, 1X/DAY
     Route: 048
  9. PRIMPERAN [Concomitant]
     Dosage: 5 MG, 3X/DAY
     Route: 048
     Dates: start: 20120720
  10. PURSENNID [Concomitant]
     Dosage: 12 MG, AS NEEDED
     Route: 048
     Dates: start: 20120725
  11. PREDONINE [Concomitant]
     Dosage: 5 MG, 2X/DAY
     Route: 048

REACTIONS (1)
  - Interstitial lung disease [Recovering/Resolving]
